FAERS Safety Report 5058129-3 (Version None)
Quarter: 2006Q3

REPORT INFORMATION
  Report Type: 
  Country: None (occurrence: None)
  Receive Date: 20060721
  Receipt Date: 20060717
  Transmission Date: 20061208
  Serious: Yes (Hospitalization)
  Sender: FDA-Public Use
  Company Number: FR-GLAXOSMITHKLINE-B0431219A

PATIENT
  Age: 47 Year
  Sex: Female

DRUGS (2)
  1. CLAMOXYL [Suspect]
     Indication: INFECTED INSECT BITE
     Dosage: 1G FOUR TIMES PER DAY
     Route: 048
     Dates: start: 20030806, end: 20030812
  2. MUPIDERM [Concomitant]
     Indication: INFECTED INSECT BITE
     Route: 061

REACTIONS (9)
  - DERMATITIS BULLOUS [None]
  - LYMPHADENOPATHY [None]
  - PETECHIAE [None]
  - PRURIGO [None]
  - PURPURA [None]
  - PYREXIA [None]
  - RASH GENERALISED [None]
  - RASH MACULO-PAPULAR [None]
  - SKIN LESION [None]
